FAERS Safety Report 24888936 (Version 1)
Quarter: 2025Q1

REPORT INFORMATION
  Report Type: Other
  Country: JP (occurrence: JP)
  Receive Date: 20250127
  Receipt Date: 20250127
  Transmission Date: 20250408
  Serious: Yes (Other)
  Sender: EMD SERONO INC
  Company Number: JP-Merck Healthcare KGaA-2025003049

PATIENT
  Age: 79 Year
  Sex: Female

DRUGS (2)
  1. TEPMETKO [Suspect]
     Active Substance: TEPOTINIB HYDROCHLORIDE
     Indication: Lung adenocarcinoma
     Dates: start: 202208, end: 202302
  2. TEPMETKO [Suspect]
     Active Substance: TEPOTINIB HYDROCHLORIDE
     Dates: start: 202303, end: 202305

REACTIONS (6)
  - Gastrointestinal oedema [Unknown]
  - Mesenteric thickening [Unknown]
  - Abdominal lymphadenopathy [Unknown]
  - Abdominal pain [Recovered/Resolved]
  - Oedema peripheral [Unknown]
  - Disease progression [Unknown]

NARRATIVE: CASE EVENT DATE: 20230201
